FAERS Safety Report 17386324 (Version 1)
Quarter: 2020Q1

REPORT INFORMATION
  Report Type: Report from Study
  Country: RU (occurrence: RU)
  Receive Date: 20200206
  Receipt Date: 20200206
  Transmission Date: 20200409
  Serious: Yes (Other)
  Sender: FDA-Public Use
  Company Number: RU-ASTRAZENECA-2020SE16696

PATIENT
  Age: 73 Year
  Sex: Male

DRUGS (1)
  1. BRILINTA [Suspect]
     Active Substance: TICAGRELOR
     Indication: MYOCARDIAL INFARCTION
     Route: 048

REACTIONS (4)
  - Blood pressure fluctuation [Unknown]
  - Condition aggravated [Unknown]
  - Conjunctival haemorrhage [Unknown]
  - Ear pain [Unknown]
